FAERS Safety Report 22355625 (Version 1)
Quarter: 2023Q2

REPORT INFORMATION
  Report Type: Spontaneous
  Country: US (occurrence: None)
  Receive Date: 20230523
  Receipt Date: 20230523
  Transmission Date: 20230722
  Serious: Yes (Hospitalization, Disabling)
  Sender: FDA-Public Use
  Company Number: None

PATIENT
  Age: 46 Year
  Sex: Male
  Weight: 65.25 kg

DRUGS (2)
  1. ZOLPIDEM [Suspect]
     Active Substance: ZOLPIDEM TARTRATE
     Indication: Drug therapy
     Dosage: FREQUENCY : AT BEDTIME;?
     Route: 048
     Dates: start: 20191012, end: 20191012
  2. Mens multivitamin [Concomitant]

REACTIONS (2)
  - Somnambulism [None]
  - Amnesia [None]

NARRATIVE: CASE EVENT DATE: 20191012
